FAERS Safety Report 15322206 (Version 1)
Quarter: 2018Q3

REPORT INFORMATION
  Report Type: Spontaneous
  Country: US (occurrence: US)
  Receive Date: 20180821
  Receipt Date: 20180821
  Transmission Date: 20181010
  Serious: Yes (Other)
  Sender: FDA-Public Use
  Company Number: None

PATIENT
  Age: 78 Year
  Sex: Female
  Weight: 58.06 kg

DRUGS (13)
  1. METOPROLOL. [Concomitant]
     Active Substance: METOPROLOL
  2. C [Concomitant]
  3. FOLIC ACID. [Concomitant]
     Active Substance: FOLIC ACID
  4. PEPTO BISMAL [Concomitant]
  5. XANAX [Concomitant]
     Active Substance: ALPRAZOLAM
  6. E [Concomitant]
  7. SYNTHROID (100) [Concomitant]
  8. D [Concomitant]
  9. TUMS [Concomitant]
     Active Substance: CALCIUM CARBONATE
  10. XARELTO [Suspect]
     Active Substance: RIVAROXABAN
     Indication: CEREBROVASCULAR ACCIDENT PROPHYLAXIS
     Dosage: ?          QUANTITY:30;OTHER FREQUENCY:1 WITH MEAL;?
     Route: 048
     Dates: start: 20180315
  11. ZANTAC [Concomitant]
     Active Substance: RANITIDINE HYDROCHLORIDE
  12. VITAMINS [Concomitant]
     Active Substance: VITAMINS
  13. VITAMIN B12 [Concomitant]
     Active Substance: CYANOCOBALAMIN

REACTIONS (4)
  - Flatulence [None]
  - Feeling abnormal [None]
  - Abdominal pain upper [None]
  - Gastric disorder [None]

NARRATIVE: CASE EVENT DATE: 20180312
